FAERS Safety Report 9204441 (Version 1)
Quarter: 2013Q1

REPORT INFORMATION
  Report Type: Spontaneous
  Country: US (occurrence: None)
  Receive Date: 20120709
  Receipt Date: 20120709
  Transmission Date: 20140127
  Serious: Yes (Other)
  Sender: FDA-Public Use
  Company Number: PHEH2011US02897

PATIENT
  Age: 65 Year
  Sex: Female

DRUGS (8)
  1. GLEEVEC [Suspect]
     Route: 048
  2. DOXYCYCLINE HYDROCHLORIDE (DOXYCYCLINE HYDROCHLORIDE) [Concomitant]
  3. FUROSEMID (FUROSEMIDE) [Concomitant]
  4. SORIATANE (ACITRETIN) [Concomitant]
  5. POTASSIUM (POTASSIUM ) [Concomitant]
  6. CALCIUM (CALCIUM) [Concomitant]
  7. VITAMIN D (ERGOCALCIFEROL) [Concomitant]
  8. GABAPENTIN (GABAPENTIN) [Concomitant]

REACTIONS (1)
  - Herpes zoster [None]
